FAERS Safety Report 5040246-5 (Version None)
Quarter: 2006Q2

REPORT INFORMATION
  Report Type: 
  Country: None (occurrence: None)
  Receive Date: 20060630
  Receipt Date: 20060406
  Transmission Date: 20061013
  Serious: Yes (Other)
  Sender: FDA-Public Use
  Company Number: PHEH2006US04537

PATIENT
  Age: 88 Year
  Sex: Female
  Weight: 61.678 kg

DRUGS (6)
  1. LOTREL [Suspect]
     Indication: HYPERTENSION
     Dosage: 5/10 MG, QD
     Route: 048
     Dates: start: 20060209, end: 20060401
  2. TOPROL-XL [Concomitant]
     Dosage: 50 MG, QD
     Route: 048
  3. ACTONEL [Concomitant]
     Dosage: 35 MG, QW
     Route: 048
  4. COUMADIN [Concomitant]
     Dosage: 1-2 MG
  5. CALCIUM WITH VITAMIN D [Concomitant]
     Dosage: 1200 MG, QD
     Route: 048
  6. CALCIUM WITH VITAMIN D [Concomitant]
     Dosage: 1200 MG, QD
     Route: 048

REACTIONS (2)
  - ROAD TRAFFIC ACCIDENT [None]
  - SOMNOLENCE [None]
